FAERS Safety Report 11691665 (Version 2)
Quarter: 2015Q4

REPORT INFORMATION
  Report Type: Spontaneous
  Country: PT (occurrence: PT)
  Receive Date: 20151102
  Receipt Date: 20151104
  Transmission Date: 20160304
  Serious: Yes (Other)
  Sender: FDA-Public Use
  Company Number: PT-ABBVIE-15K-130-1491171-00

PATIENT
  Age: 40 Year
  Sex: Male

DRUGS (14)
  1. HUMIRA [Suspect]
     Active Substance: ADALIMUMAB
     Route: 058
     Dates: start: 2011, end: 201201
  2. COLCHICINE. [Concomitant]
     Active Substance: COLCHICINE
     Dates: start: 201102
  3. COLCHICINE. [Concomitant]
     Active Substance: COLCHICINE
     Dates: start: 201110
  4. METHYLPREDNISOLONE. [Concomitant]
     Active Substance: METHYLPREDNISOLONE
     Indication: PRODUCT USED FOR UNKNOWN INDICATION
     Route: 042
     Dates: start: 200911, end: 200911
  5. HUMIRA [Suspect]
     Active Substance: ADALIMUMAB
     Route: 058
     Dates: start: 201012, end: 2011
  6. COLCHICINE. [Concomitant]
     Active Substance: COLCHICINE
     Indication: PRODUCT USED FOR UNKNOWN INDICATION
     Dates: start: 201006
  7. PREDNISOLONE. [Concomitant]
     Active Substance: PREDNISOLONE
     Indication: PRODUCT USED FOR UNKNOWN INDICATION
     Dates: start: 200911
  8. CYCLOSPORINE. [Concomitant]
     Active Substance: CYCLOSPORINE
     Dates: start: 201102, end: 201109
  9. PREDNISOLONE. [Concomitant]
     Active Substance: PREDNISOLONE
     Dates: start: 201102
  10. AZATHIOPRINE. [Concomitant]
     Active Substance: AZATHIOPRINE
     Indication: PRODUCT USED FOR UNKNOWN INDICATION
     Dates: start: 201109, end: 201201
  11. HUMIRA [Suspect]
     Active Substance: ADALIMUMAB
     Indication: PRODUCT USED FOR UNKNOWN INDICATION
     Route: 058
     Dates: start: 200911, end: 201012
  12. CYCLOSPORINE. [Concomitant]
     Active Substance: CYCLOSPORINE
     Indication: PRODUCT USED FOR UNKNOWN INDICATION
     Dates: start: 200911, end: 201102
  13. METHYLPREDNISOLONE. [Concomitant]
     Active Substance: METHYLPREDNISOLONE
     Route: 042
     Dates: start: 201012, end: 201012
  14. METHYLPREDNISOLONE. [Concomitant]
     Active Substance: METHYLPREDNISOLONE
     Route: 042
     Dates: start: 201201, end: 201201

REACTIONS (14)
  - Dizziness [Recovered/Resolved]
  - Retinal ischaemia [Recovering/Resolving]
  - Visual acuity reduced [Recovering/Resolving]
  - Headache [Recovered/Resolved]
  - White matter lesion [Unknown]
  - Retinal vasculitis [Recovering/Resolving]
  - Blood immunoglobulin G increased [Unknown]
  - Chorioretinitis [Unknown]
  - Renal impairment [Recovered/Resolved]
  - Visual acuity reduced [Recovering/Resolving]
  - CSF white blood cell count increased [Unknown]
  - Aphthous ulcer [Unknown]
  - Arthritis [Recovering/Resolving]
  - Cerebrovascular disorder [Recovering/Resolving]

NARRATIVE: CASE EVENT DATE: 201006
